FAERS Safety Report 25500028 (Version 1)
Quarter: 2025Q2

REPORT INFORMATION
  Report Type: Spontaneous
  Country: US (occurrence: None)
  Receive Date: 20250628
  Receipt Date: 20250628
  Transmission Date: 20250716
  Serious: Yes (Other)
  Sender: FDA-CTU
  Company Number: None

PATIENT
  Age: 54 Year
  Sex: Female
  Weight: 63 kg

DRUGS (4)
  1. NITROFURANTOIN [Suspect]
     Active Substance: NITROFURANTOIN
     Indication: Urinary tract infection
     Dosage: OTHER QUANTITY : 1 CAPSULE(S);?FREQUENCY : TWICE A DAY;?
     Route: 048
  2. NIACIN [Concomitant]
     Active Substance: NIACIN
  3. VITAMIN B3 [Concomitant]
     Active Substance: NIACIN
  4. IBU /PRN [Concomitant]

REACTIONS (8)
  - Pain [None]
  - Arthralgia [None]
  - Hypoaesthesia [None]
  - Hypoaesthesia [None]
  - Paraesthesia [None]
  - Palpitations [None]
  - Influenza [None]
  - Hangover [None]

NARRATIVE: CASE EVENT DATE: 20250627
